FAERS Safety Report 15016027 (Version 3)
Quarter: 2018Q3

REPORT INFORMATION
  Report Type: Spontaneous
  Country: DE (occurrence: DE)
  Receive Date: 20180615
  Receipt Date: 20180709
  Transmission Date: 20181010
  Serious: Yes (Hospitalization, Other)
  Sender: FDA-Public Use
  Company Number: PHHY2018DE022339

PATIENT
  Age: 65 Year
  Sex: Male
  Weight: 95 kg

DRUGS (3)
  1. DOCETAXEL. [Suspect]
     Active Substance: DOCETAXEL
     Indication: NON-SMALL CELL LUNG CANCER
     Dosage: 1 DF, QD (UNIT DOSE: 75MG/M^2 BSA)
     Route: 042
     Dates: start: 20180125, end: 20180215
  2. VARGATEF [Suspect]
     Active Substance: NINTEDANIB
     Indication: NON-SMALL CELL LUNG CANCER
     Dosage: 400 MG, QD
     Route: 048
     Dates: start: 20180126, end: 20180301
  3. DOCETAXEL. [Suspect]
     Active Substance: DOCETAXEL
     Dosage: 75 MG/M2, UNK
     Route: 042
     Dates: start: 20180125, end: 20180215

REACTIONS (5)
  - Vascular access complication [Recovered/Resolved]
  - Portal vein thrombosis [Recovered/Resolved]
  - Oedema peripheral [Recovered/Resolved]
  - Pulmonary embolism [Recovered/Resolved]
  - Deep vein thrombosis [Recovered/Resolved]

NARRATIVE: CASE EVENT DATE: 20180208
